FAERS Safety Report 18480854 (Version 1)
Quarter: 2020Q4

REPORT INFORMATION
  Report Type: Spontaneous
  Country: NL (occurrence: NL)
  Receive Date: 20201109
  Receipt Date: 20201109
  Transmission Date: 20210114
  Serious: Yes (Other)
  Sender: FDA-Public Use
  Company Number: NL-VIRTUS PHARMACEUTICALS, LLC-2020VTS00083

PATIENT
  Age: 70 Year
  Sex: Female

DRUGS (2)
  1. ALBUTEROL. [Suspect]
     Active Substance: ALBUTEROL
     Indication: CHRONIC OBSTRUCTIVE PULMONARY DISEASE
     Dosage: RECEIVED MULTIPLE ALBUTEROL-IPRATROPIUM NEBULIZATIONS
  2. IPRATROPIUM [Suspect]
     Active Substance: IPRATROPIUM
     Indication: CHRONIC OBSTRUCTIVE PULMONARY DISEASE
     Dosage: MULTIPLE IPRATROPIUM-ALBUTEROL NEBULIZATIONS

REACTIONS (1)
  - Stress cardiomyopathy [Recovering/Resolving]
